FAERS Safety Report 25491586 (Version 13)
Quarter: 2025Q4

REPORT INFORMATION
  Report Type: Report from Study
  Country: EU (occurrence: EU)
  Receive Date: 20250629
  Receipt Date: 20251224
  Transmission Date: 20260117
  Serious: Yes (Other)
  Sender: ABBVIE
  Company Number: EU-ABBVIE-6326072

PATIENT
  Age: 53 Year
  Sex: Male

DRUGS (9)
  1. FOSCARBIDOPA\FOSLEVODOPA [Suspect]
     Active Substance: FOSCARBIDOPA\FOSLEVODOPA
     Indication: Parkinson^s disease
     Route: 058
     Dates: start: 20240419, end: 20250618
  2. FOSCARBIDOPA\FOSLEVODOPA [Suspect]
     Active Substance: FOSCARBIDOPA\FOSLEVODOPA
     Dosage: INCREASE THE SPEED BY 0.01 MILLILITER PER HOUR. INCREASED BASELINE AND HIGH VELOCITY TO 0.34 ML P...
     Route: 058
     Dates: start: 20250618, end: 2025
  3. FOSCARBIDOPA\FOSLEVODOPA [Suspect]
     Active Substance: FOSCARBIDOPA\FOSLEVODOPA
     Dosage: SPEED WAS INCREASED BY 0.02 ML PER HOUR, BUT NOT TO EXCEED 0.38 ML PER HOUR
     Route: 058
     Dates: start: 2025, end: 2025
  4. FOSCARBIDOPA\FOSLEVODOPA [Suspect]
     Active Substance: FOSCARBIDOPA\FOSLEVODOPA
     Dosage: SPEEDS CHANGED
     Route: 058
     Dates: start: 2025, end: 20251105
  5. FOSCARBIDOPA\FOSLEVODOPA [Suspect]
     Active Substance: FOSCARBIDOPA\FOSLEVODOPA
     Dosage: NEW REGIMEN
     Route: 058
     Dates: start: 20251105
  6. SINEMET [Suspect]
     Active Substance: CARBIDOPA\LEVODOPA
     Indication: Product used for unknown indication
     Route: 048
  7. CLOZAPINE [Suspect]
     Active Substance: CLOZAPINE
     Indication: Product used for unknown indication
     Dosage: INJECTABLE
     Route: 065
     Dates: end: 20250620
  8. CLOZAPINE [Suspect]
     Active Substance: CLOZAPINE
     Indication: Product used for unknown indication
     Route: 048
     Dates: start: 20250620
  9. CLOZAPINE [Suspect]
     Active Substance: CLOZAPINE
     Indication: Product used for unknown indication
     Route: 048
     Dates: start: 20251119

REACTIONS (16)
  - Suicidal ideation [Recovered/Resolved]
  - Loss of personal independence in daily activities [Unknown]
  - Tremor [Recovered/Resolved]
  - Restlessness [Recovering/Resolving]
  - Bradykinesia [Unknown]
  - Drug ineffective [Unknown]
  - Nervousness [Recovered/Resolved]
  - Malaise [Not Recovered/Not Resolved]
  - Frustration tolerance decreased [Recovered/Resolved]
  - Discomfort [Unknown]
  - Autonomic nervous system imbalance [Not Recovered/Not Resolved]
  - Freezing phenomenon [Not Recovered/Not Resolved]
  - Gait disturbance [Recovering/Resolving]
  - Anger [Recovered/Resolved]
  - Condition aggravated [Unknown]
  - Drooling [Unknown]

NARRATIVE: CASE EVENT DATE: 20250101
